FAERS Safety Report 6536815-3 (Version None)
Quarter: 2010Q1

REPORT INFORMATION
  Report Type: 
  Country: None (occurrence: None)
  Receive Date: 20100107
  Receipt Date: 20100104
  Transmission Date: 20100710
  Serious: Yes (Death, Hospitalization)
  Sender: FDA-Public Use
  Company Number: CERZ-1001080

PATIENT
  Age: 61 Year
  Sex: Male
  Weight: 97 kg

DRUGS (1)
  1. CEREZYME [Suspect]
     Indication: GAUCHER'S DISEASE
     Dosage: 2800 U, Q2W, INTRAVENOUS, 3000 U, Q2W, IV
     Route: 042
     Dates: start: 19961112

REACTIONS (4)
  - AORTIC DILATATION [None]
  - AORTIC VALVE INCOMPETENCE [None]
  - DEAFNESS UNILATERAL [None]
  - RUPTURED CEREBRAL ANEURYSM [None]
